FAERS Safety Report 8243663-5 (Version None)
Quarter: 2012Q1

REPORT INFORMATION
  Report Type: 
  Country: None (occurrence: None)
  Receive Date: 20120329
  Receipt Date: 20120319
  Transmission Date: 20120608
  Serious: Yes (Hospitalization)
  Sender: FDA-Public Use
  Company Number: US-NOVEN-12US004312

PATIENT
  Sex: Female

DRUGS (2)
  1. FENTANYL [Suspect]
     Dosage: 75 UG/HR
     Route: 062
     Dates: end: 20120314
  2. FENTANYL [Suspect]
     Indication: PAIN
     Dosage: 100 UG/HR
     Route: 062
     Dates: start: 20120315

REACTIONS (2)
  - UNRESPONSIVE TO STIMULI [None]
  - DRUG ADMINISTRATION ERROR [None]
